FAERS Safety Report 9808528 (Version 4)
Quarter: 2014Q3

REPORT INFORMATION
  Report Type: Spontaneous
  Country: DE (occurrence: DE)
  Receive Date: 20140110
  Receipt Date: 20140708
  Transmission Date: 20150326
  Serious: Yes (Death, Hospitalization)
  Sender: FDA-Public Use
  Company Number: DE-JNJFOC-20140104372

PATIENT
  Sex: Male

DRUGS (10)
  1. NEORECORMON [Concomitant]
     Active Substance: ERYTHROPOIETIN
     Route: 065
     Dates: start: 201312
  2. NOVALGIN [Concomitant]
     Active Substance: METAMIZOLE SODIUM
     Dosage: 20 DROPS 5-6 TIMES DAILY
     Route: 065
  3. EUTHYROX [Concomitant]
     Active Substance: LEVOTHYROXINE SODIUM
     Dosage: 75 (UNIT UNSPECIFIED)
     Route: 065
  4. TRENANTONE [Concomitant]
     Active Substance: LEUPROLIDE ACETATE
     Dosage: 3 MONTHS DEPOT
     Route: 065
  5. ZYTIGA [Suspect]
     Active Substance: ABIRATERONE ACETATE
     Indication: PROSTATE CANCER METASTATIC
     Route: 048
     Dates: start: 201309, end: 20131221
  6. VALSARTAN. [Concomitant]
     Active Substance: VALSARTAN
     Dosage: 160/25 (UNIT UNSPECIFIED)
     Route: 065
  7. PREDNISOLON [Concomitant]
     Active Substance: PREDNISOLONE
     Route: 065
  8. TAMSULOSIN [Concomitant]
     Active Substance: TAMSULOSIN
     Dosage: 0.4 (UNIT UNSPECIFIED)
     Route: 065
  9. FENTANYL. [Concomitant]
     Active Substance: FENTANYL
     Route: 065
  10. ZOMETA [Concomitant]
     Active Substance: ZOLEDRONIC ACID
     Route: 042

REACTIONS (1)
  - Acute hepatic failure [Fatal]
